FAERS Safety Report 25105416 (Version 1)
Quarter: 2025Q1

REPORT INFORMATION
  Report Type: Spontaneous
  Country: US (occurrence: US)
  Receive Date: 20250321
  Receipt Date: 20250321
  Transmission Date: 20250409
  Serious: No
  Sender: GLAND PHARMA LTD
  Company Number: US-GLANDPHARMA-US-2025GLNSPO00639

PATIENT
  Age: 41 Year
  Sex: Female

DRUGS (2)
  1. DOXORUBICIN HYDROCHLORIDE [Suspect]
     Active Substance: DOXORUBICIN HYDROCHLORIDE
     Indication: Leiomyosarcoma
     Route: 065
  2. TRABECTEDIN [Concomitant]
     Active Substance: TRABECTEDIN
     Indication: Leiomyosarcoma
     Route: 065

REACTIONS (1)
  - Drug ineffective for unapproved indication [Unknown]
